FAERS Safety Report 5913469-8 (Version None)
Quarter: 2008Q4

REPORT INFORMATION
  Report Type: 
  Country: None (occurrence: None)
  Receive Date: 20081007
  Receipt Date: 20080923
  Transmission Date: 20090506
  Serious: Yes (Hospitalization, Disabling)
  Sender: FDA-Public Use
  Company Number: 2008S1017262

PATIENT
  Age: 59 Year
  Sex: Female
  Weight: 54 kg

DRUGS (9)
  1. LOVASTATIN [Suspect]
     Indication: DYSLIPIDAEMIA
     Dosage: 20 MG; DAILY;  40 MG; DAILY
  2. LOVASTATIN [Suspect]
     Indication: HYPERCHOLESTEROLAEMIA
     Dosage: 20 MG; DAILY;  40 MG; DAILY
  3. DANAZOL [Suspect]
     Indication: PLATELET COUNT DECREASED
     Dosage: 600 MG; DAILY;
  4. DANAZOL [Suspect]
     Indication: THROMBOCYTOPENIA
     Dosage: 600 MG; DAILY;
  5. CALCIUM CARBONATE [Concomitant]
  6. LABETALOL HCL [Concomitant]
  7. GLIPIZIDE [Concomitant]
  8. SILYMARIN [Concomitant]
  9. ALPRAZOLAM [Concomitant]

REACTIONS (9)
  - ANAEMIA [None]
  - CONDITION AGGRAVATED [None]
  - GINGIVAL BLEEDING [None]
  - HEPATITIS [None]
  - PANCREATITIS [None]
  - RENAL ATROPHY [None]
  - RHABDOMYOLYSIS [None]
  - THROMBOCYTOPENIA [None]
  - THYROID FUNCTION TEST ABNORMAL [None]
